FAERS Safety Report 4276553-3 (Version None)
Quarter: 2004Q1

REPORT INFORMATION
  Report Type: 
  Country: None (occurrence: None)
  Receive Date: 20040120
  Receipt Date: 20040113
  Transmission Date: 20041129
  Serious: Yes (Death)
  Sender: FDA-Public Use
  Company Number: KII-2003-0003511

PATIENT
  Sex: Male

DRUGS (1)
  1. OXYCONTIN [Suspect]
     Dosage: 20 MG, BID

REACTIONS (4)
  - CARDIAC FAILURE CONGESTIVE [None]
  - GASTROENTERITIS RADIATION [None]
  - MALABSORPTION [None]
  - MALNUTRITION [None]
